FAERS Safety Report 8437875-5 (Version None)
Quarter: 2012Q2

REPORT INFORMATION
  Report Type: 
  Country: None (occurrence: None)
  Receive Date: 20120614
  Receipt Date: 20120521
  Transmission Date: 20120825
  Serious: No
  Sender: FDA-Public Use
  Company Number: US-AMGEN-USASP2012031929

PATIENT
  Age: 72 Year
  Sex: Female

DRUGS (3)
  1. SYNTHROID [Concomitant]
  2. PROLIA [Suspect]
     Indication: OSTEOPENIA
     Dosage: UNK UNK, Q6MO
     Dates: start: 20110101
  3. AZOR                               /00595201/ [Concomitant]

REACTIONS (1)
  - BACK PAIN [None]
